FAERS Safety Report 8762032 (Version 2)
Quarter: 2012Q4

REPORT INFORMATION
  Report Type: 
  Country: AU (occurrence: AU)
  Receive Date: 20120830
  Receipt Date: 20120928
  Transmission Date: 20130627
  Serious: Yes (Hospitalization)
  Sender: FDA-Public Use
  Company Number: AU-PFIZER INC-2012210162

PATIENT
  Age: 91 Year
  Sex: Male

DRUGS (15)
  1. LIPITOR [Suspect]
     Indication: HYPERLIPIDAEMIA
     Dosage: 40 mg, 1x/day
     Route: 048
     Dates: start: 2004, end: 2012
  2. COUMADINE [Concomitant]
     Indication: ATRIAL FIBRILLATION
     Dosage: 1 mg, 1x/day as directed
     Dates: start: 2008
  3. COUMADINE [Concomitant]
     Dosage: 2 mg, as per INR
  4. COUMADINE [Concomitant]
     Dosage: 5 mg, 1x/day
  5. ALLOPURINOL [Concomitant]
     Dosage: 100 mg, 1x/day
  6. AVANZA [Concomitant]
     Dosage: 30 mg, 1x/day
  7. AVAPRO HCT [Concomitant]
     Dosage: 300/25mg, 1x/day
  8. ELOCON [Concomitant]
     Dosage: 0.1 %, 1x/day
  9. EPILIM [Concomitant]
     Dosage: 200 mg, 2x/day
  10. LANOXIN PG [Concomitant]
     Dosage: 62.5 ug, 1x/day
  11. PEPCIDIN [Concomitant]
     Dosage: 40 mg, 1x/day
  12. PREDNISOLONE [Concomitant]
     Dosage: 1mg, 1-2 daily as per ESR
  13. PREDNISOLONE [Concomitant]
     Dosage: 5mg,1-3 daily according to ESR
  14. SEREPAX [Concomitant]
     Dosage: 30mg, 1/2 to 1 tablet, as needed
  15. TENORMIN [Concomitant]
     Dosage: 25 mg, 2x/day

REACTIONS (2)
  - Fall [Recovered/Resolved]
  - Anticoagulation drug level below therapeutic [Recovered/Resolved]
